FAERS Safety Report 19954604 (Version 2)
Quarter: 2021Q4

REPORT INFORMATION
  Report Type: Report from Study
  Country: US (occurrence: US)
  Receive Date: 20211014
  Receipt Date: 20211021
  Transmission Date: 20220303
  Serious: Yes (Life-Threatening, Other)
  Sender: FDA-Public Use
  Company Number: US-GILEAD-2021-0552045

PATIENT
  Sex: Female
  Weight: 89.8 kg

DRUGS (20)
  1. AVIPTADIL [Suspect]
     Active Substance: AVIPTADIL
     Indication: COVID-19
     Dosage: 200 MG
     Route: 042
     Dates: start: 20210930, end: 20211002
  2. PLACEBO [Suspect]
     Active Substance: UNSPECIFIED INGREDIENT
     Indication: COVID-19
     Dosage: 200 MG
     Route: 042
     Dates: start: 20210930, end: 20211002
  3. REMDESIVIR [Suspect]
     Active Substance: REMDESIVIR
     Indication: COVID-19
     Dosage: 200 MG
     Route: 042
     Dates: start: 20210930, end: 20211002
  4. AVIPTADIL [Suspect]
     Active Substance: AVIPTADIL
     Dosage: UNK
     Route: 042
     Dates: start: 20210930, end: 20211002
  5. PLACEBO [Suspect]
     Active Substance: UNSPECIFIED INGREDIENT
     Dosage: UNK
     Route: 042
     Dates: start: 20210930, end: 20211002
  6. REMDESIVIR [Suspect]
     Active Substance: REMDESIVIR
     Dosage: UNK
     Route: 042
     Dates: start: 20210930, end: 20211002
  7. NOREPINEPHRINE [Concomitant]
     Active Substance: NOREPINEPHRINE
     Dosage: 1-3 MCG/MIN
     Dates: start: 20210930, end: 20211003
  8. NOREPINEPHRINE [Concomitant]
     Active Substance: NOREPINEPHRINE
     Dosage: 50 MCG/MIN
     Dates: start: 20211003
  9. PHENYLEPHRINE [Concomitant]
     Active Substance: PHENYLEPHRINE HYDROCHLORIDE
  10. VASOPRESSIN [Concomitant]
     Active Substance: VASOPRESSIN
  11. DEXAMETHASONE [Concomitant]
     Active Substance: DEXAMETHASONE
  12. CEFTRIAXONE [Concomitant]
     Active Substance: CEFTRIAXONE
  13. AZITHROMYCIN ANHYDROUS [Concomitant]
     Active Substance: AZITHROMYCIN ANHYDROUS
  14. PROPOFOL [Concomitant]
     Active Substance: PROPOFOL
  15. METOPROLOL [Concomitant]
     Active Substance: METOPROLOL
  16. MIDAZOLAM [Concomitant]
     Active Substance: MIDAZOLAM
  17. CISATRACURIUM [Concomitant]
     Active Substance: CISATRACURIUM
  18. FENTANYL [Concomitant]
     Active Substance: FENTANYL
  19. VANCOMYCIN [Concomitant]
     Active Substance: VANCOMYCIN
  20. OXYGEN [Concomitant]
     Active Substance: OXYGEN

REACTIONS (1)
  - Hypotension [Recovered/Resolved]

NARRATIVE: CASE EVENT DATE: 20211003
